FAERS Safety Report 5583166-X (Version None)
Quarter: 2008Q1

REPORT INFORMATION
  Report Type: 
  Country: None (occurrence: None)
  Receive Date: 20080103
  Receipt Date: 20080103
  Transmission Date: 20080703
  Serious: No
  Sender: FDA-Public Use
  Company Number: None

PATIENT
  Age: 39 Year
  Sex: Male
  Weight: 81.6475 kg

DRUGS (1)
  1. DESMOPRESSIN   0.4MG [Suspect]
     Dosage: 0.4MG HS PO
     Route: 048

REACTIONS (1)
  - HYPONATRAEMIA [None]
